FAERS Safety Report 5464481-7 (Version None)
Quarter: 2007Q3

REPORT INFORMATION
  Report Type: 
  Country: None (occurrence: None)
  Receive Date: 20070921
  Receipt Date: 20070906
  Transmission Date: 20080115
  Serious: Yes (Other)
  Sender: FDA-Public Use
  Company Number: GB-SHR-GB-2007-033507

PATIENT
  Age: 12 Year
  Sex: Male

DRUGS (11)
  1. FLUDARABINE PHOSPHATE [Suspect]
     Indication: X-LINKED CHROMOSOMAL DISORDER
     Dosage: 150 MG/M2, UNK
  2. MELPHALAN [Suspect]
     Indication: X-LINKED CHROMOSOMAL DISORDER
     Dosage: 140 MG/M2, UNK
  3. CAMPATH [Suspect]
     Indication: X-LINKED CHROMOSOMAL DISORDER
     Dosage: 1 MG/KG, UNK
  4. CYCLOSPORINE [Concomitant]
     Indication: PROPHYLAXIS AGAINST GRAFT VERSUS HOST DISEASE
  5. MYCOPHENOLATE MOFETIL [Concomitant]
  6. ACYCLOVIR [Concomitant]
     Indication: INFECTION PROPHYLAXIS
  7. CIPROFLOXACIN [Concomitant]
     Indication: INFECTION PROPHYLAXIS
     Route: 048
  8. CO-TRIMOXAZOLE [Concomitant]
     Indication: INFECTION PROPHYLAXIS
  9. IMMUNOGLOBULINS [Concomitant]
     Indication: INFECTION PROPHYLAXIS
     Route: 042
  10. ITRACONAZOLE [Concomitant]
     Indication: INFECTION PROPHYLAXIS
  11. PHENOXYMETHYL PENICILLIN [Concomitant]
     Indication: INFECTION PROPHYLAXIS

REACTIONS (4)
  - CONVULSION [None]
  - EPSTEIN-BARR VIRAEMIA [None]
  - PULMONARY MYCOSIS [None]
  - VIRAEMIA [None]
